FAERS Safety Report 8762604 (Version 3)
Quarter: 2013Q4

REPORT INFORMATION
  Report Type: Spontaneous
  Country: US (occurrence: US)
  Receive Date: 20120830
  Receipt Date: 20131031
  Transmission Date: 20140711
  Serious: Yes (Hospitalization, Other)
  Sender: FDA-Public Use
  Company Number: US-009507513-2011SP051270

PATIENT
  Age: 24 Year
  Sex: Female
  Weight: 56.7 kg

DRUGS (1)
  1. NUVARING [Suspect]
     Indication: CONTRACEPTION
     Dates: start: 200804, end: 200811

REACTIONS (4)
  - Pulmonary embolism [Unknown]
  - Headache [Unknown]
  - Burns second degree [Recovering/Resolving]
  - Nervous system disorder [Unknown]
